FAERS Safety Report 4581708-4 (Version None)
Quarter: 2005Q1

REPORT INFORMATION
  Report Type: 
  Country: None (occurrence: None)
  Receive Date: 20050214
  Receipt Date: 20041222
  Transmission Date: 20050727
  Serious: No
  Sender: FDA-Public Use
  Company Number: US-GLAXOSMITHKLINE-A0538295A

PATIENT
  Age: 64 Year
  Sex: Female

DRUGS (5)
  1. LAMICTAL [Suspect]
     Dosage: 50MG PER DAY
     Route: 048
     Dates: start: 20041001
  2. ALTACE [Concomitant]
  3. GLUCOPHAGE [Concomitant]
  4. LESCOL [Concomitant]
  5. LOVASTATIN [Concomitant]

REACTIONS (10)
  - APHTHOUS STOMATITIS [None]
  - AURA [None]
  - DRUG INEFFECTIVE [None]
  - FEELING ABNORMAL [None]
  - HEADACHE [None]
  - INSOMNIA [None]
  - LYMPHADENOPATHY [None]
  - PALPITATIONS [None]
  - TONGUE ULCERATION [None]
  - VISUAL DISTURBANCE [None]
